FAERS Safety Report 9866122 (Version 1)
Quarter: 2014Q1

REPORT INFORMATION
  Report Type: Spontaneous
  Country: US (occurrence: US)
  Receive Date: 20140203
  Receipt Date: 20140203
  Transmission Date: 20141002
  Serious: No
  Sender: FDA-Public Use
  Company Number: US-ALLERGAN-1316861US

PATIENT
  Age: 87 Year
  Sex: Female

DRUGS (3)
  1. RESTASIS [Suspect]
     Indication: DRY EYE
     Dosage: 2 GTT, BID
     Route: 047
  2. REFRESH OPTIVE [Suspect]
     Indication: DRY EYE
     Dosage: 2 GTT, UNK
     Route: 047
  3. LUBRICATING EYE DROPS [Concomitant]
     Indication: DRY EYE

REACTIONS (4)
  - Rhinorrhoea [Unknown]
  - Nasal discomfort [Unknown]
  - Eye irritation [Unknown]
  - Hypersensitivity [Unknown]
